FAERS Safety Report 10075803 (Version 1)
Quarter: 2014Q2

REPORT INFORMATION
  Report Type: Spontaneous
  Country: GB (occurrence: GB)
  Receive Date: 20140414
  Receipt Date: 20140414
  Transmission Date: 20141212
  Serious: Yes (Other)
  Sender: FDA-Public Use
  Company Number: GB-JNJFOC-20140405497

PATIENT
  Age: 34 Year
  Sex: Male

DRUGS (6)
  1. DARUNAVIR [Suspect]
     Indication: HIV INFECTION
     Route: 065
     Dates: start: 201305
  2. TAMSULOSIN [Interacting]
     Indication: URINARY TRACT DISORDER
     Route: 065
  3. TRIAMCINOLONE ACETONIDE [Interacting]
     Indication: MUSCLE BUILDING THERAPY
     Route: 030
  4. TRIAMCINOLONE ACETONIDE [Interacting]
     Indication: RASH
     Route: 030
  5. TRUVADA [Suspect]
     Indication: HIV INFECTION
     Route: 065
     Dates: start: 201305
  6. RITONAVIR [Suspect]
     Indication: HIV INFECTION
     Route: 065
     Dates: start: 201305

REACTIONS (3)
  - Cushing^s syndrome [Unknown]
  - Retrograde ejaculation [Unknown]
  - Drug interaction [Unknown]
